FAERS Safety Report 8259121-8 (Version None)
Quarter: 2012Q2

REPORT INFORMATION
  Report Type: 
  Country: None (occurrence: None)
  Receive Date: 20120404
  Receipt Date: 20120323
  Transmission Date: 20120825
  Serious: Yes (Hospitalization, Other)
  Sender: FDA-Public Use
  Company Number: US-SANOFI-AVENTIS-2012SA020523

PATIENT
  Sex: Female

DRUGS (4)
  1. LOVENOX [Suspect]
  2. LOVENOX [Suspect]
     Indication: PULMONARY EMBOLISM
  3. LOVENOX [Suspect]
  4. LOVENOX [Suspect]

REACTIONS (9)
  - ANAEMIA [None]
  - HAEMORRHAGE [None]
  - HAEMOGLOBIN DECREASED [None]
  - DIARRHOEA [None]
  - HAEMATOCRIT DECREASED [None]
  - CONFUSIONAL STATE [None]
  - INJECTION SITE HAEMATOMA [None]
  - HAEMATOMA [None]
  - DYSPNOEA [None]
